FAERS Safety Report 23427908 (Version 3)
Quarter: 2024Q4

REPORT INFORMATION
  Report Type: Spontaneous
  Country: US (occurrence: US)
  Receive Date: 20240122
  Receipt Date: 20241001
  Transmission Date: 20250115
  Serious: No
  Sender: PFIZER
  Company Number: US-PFIZER INC-PV202400008240

PATIENT
  Age: 59 Year
  Sex: Female

DRUGS (10)
  1. XELJANZ [Suspect]
     Active Substance: TOFACITINIB CITRATE
     Indication: Rheumatoid arthritis
     Dosage: 5 MG, 2X/DAY
     Dates: start: 2016
  2. CELEBREX [Suspect]
     Active Substance: CELECOXIB
     Indication: Rheumatoid arthritis
     Dosage: PER DAY
     Dates: start: 2018, end: 2023
  3. MELOXICAM [Suspect]
     Active Substance: MELOXICAM
     Indication: Rheumatoid arthritis
     Dosage: 2 PER DAY
     Dates: start: 2023, end: 2023
  4. NAPROXEN [Suspect]
     Active Substance: NAPROXEN
  5. LEFLUNOMIDE [Suspect]
     Active Substance: LEFLUNOMIDE
     Indication: Rheumatoid arthritis
     Dosage: PER DAY
     Dates: start: 2015, end: 2018
  6. FISH OIL [Concomitant]
     Active Substance: FISH OIL
     Dosage: UNK
     Dates: end: 2024
  7. ALEVE [Concomitant]
     Active Substance: NAPROXEN SODIUM
     Dosage: UNK
  8. ADVIL [Concomitant]
     Active Substance: IBUPROFEN
     Dosage: UNK
  9. MOVE FREE JOINT HEALTH [Concomitant]
     Dosage: UNK
  10. TRAMADOL [Concomitant]
     Active Substance: TRAMADOL
     Dosage: UNK
     Dates: end: 2024

REACTIONS (4)
  - Gastrointestinal disorder [Recovered/Resolved]
  - Migraine [Not Recovered/Not Resolved]
  - Musculoskeletal stiffness [Unknown]
  - Neck pain [Unknown]

NARRATIVE: CASE EVENT DATE: 20180101
